FAERS Safety Report 4462055-8 (Version None)
Quarter: 2004Q3

REPORT INFORMATION
  Report Type: 
  Country: None (occurrence: None)
  Receive Date: 20040924
  Receipt Date: 20040916
  Transmission Date: 20050211
  Serious: No
  Sender: FDA-Public Use
  Company Number: 2004SE04468

PATIENT
  Age: 68 Year
  Sex: Female
  Weight: 77 kg

DRUGS (1)
  1. CARBOCAINE [Suspect]
     Dosage: 130 MG ONCE; IF
     Dates: start: 20040610, end: 20040610

REACTIONS (15)
  - ARTHRALGIA [None]
  - ASTHENIA [None]
  - ATRIAL FIBRILLATION [None]
  - BLOOD PRESSURE SYSTOLIC INCREASED [None]
  - CHILLS [None]
  - DEPRESSED LEVEL OF CONSCIOUSNESS [None]
  - DYSPNOEA EXERTIONAL [None]
  - FEELING ABNORMAL [None]
  - HEART RATE INCREASED [None]
  - MUSCLE CRAMP [None]
  - NERVOUS SYSTEM DISORDER [None]
  - PAIN IN EXTREMITY [None]
  - PELVIC PAIN [None]
  - TOOTH DISORDER [None]
  - TREMOR [None]
